FAERS Safety Report 4559592-4 (Version None)
Quarter: 2005Q1

REPORT INFORMATION
  Report Type: 
  Country: None (occurrence: None)
  Receive Date: 20050113
  Receipt Date: 20041021
  Transmission Date: 20050727
  Serious: Yes (Other)
  Sender: FDA-Public Use
  Company Number: 346435

PATIENT
  Sex: Male

DRUGS (1)
  1. FUZEON [Suspect]
     Dosage: SUBCUTANEOUS
     Route: 058
     Dates: start: 20020115

REACTIONS (6)
  - ADVERSE EVENT [None]
  - INJECTION SITE PRURITUS [None]
  - INJECTION SITE REACTION [None]
  - INJECTION SITE SWELLING [None]
  - MENTAL IMPAIRMENT [None]
  - SKIN DISORDER [None]
